FAERS Safety Report 7368785-2 (Version None)
Quarter: 2011Q1

REPORT INFORMATION
  Report Type: 
  Country: None (occurrence: None)
  Receive Date: 20110304
  Receipt Date: 20101029
  Transmission Date: 20110831
  Serious: Yes (Death, Life-Threatening, Other)
  Sender: FDA-Public Use
  Company Number: CLOF-10785

PATIENT
  Age: 70 Year
  Sex: Female

DRUGS (16)
  1. CASPOFUNGIN (CASPOFUNGIN) [Concomitant]
  2. ZANTAC [Concomitant]
  3. NEXIUM [Concomitant]
  4. AMBIEN [Concomitant]
  5. REGLAN [Concomitant]
  6. CLOFARABINE [Suspect]
     Indication: ACUTE MYELOID LEUKAEMIA
     Dosage: 64 MG, QDX5, INTRAVENOUS
     Route: 042
     Dates: start: 20071113, end: 20071117
  7. SEPTRA DS [Concomitant]
  8. CYTARABINE [Suspect]
     Indication: ACUTE MYELOID LEUKAEMIA
     Dosage: 1600 MG/M2X5DAY, INTRAVENOUS
     Route: 042
     Dates: start: 20071113, end: 20071117
  9. PERCOCET [Concomitant]
  10. ATIVAN [Concomitant]
  11. METOPROLOL (METOPROLOL) [Concomitant]
  12. SYNTHROID [Concomitant]
  13. DEXAMETHASONE (DEXAMETHASONE) [Concomitant]
  14. ACYCLOVIR [Concomitant]
  15. ALLOPURINOL [Concomitant]
  16. PEPCID [Concomitant]

REACTIONS (11)
  - STOMATOCOCCUS TEST POSITIVE [None]
  - PULMONARY ALVEOLAR HAEMORRHAGE [None]
  - CEREBROVASCULAR ACCIDENT [None]
  - FEBRILE NEUTROPENIA [None]
  - ACUTE RESPIRATORY FAILURE [None]
  - RENAL FAILURE ACUTE [None]
  - THROMBOCYTOPENIA [None]
  - BACTERAEMIA [None]
  - HAEMODIALYSIS [None]
  - SEPTIC SHOCK [None]
  - HAEMOGLOBIN DECREASED [None]
